FAERS Safety Report 5509765-9 (Version None)
Quarter: 2007Q4

REPORT INFORMATION
  Report Type: 
  Country: None (occurrence: None)
  Receive Date: 20071108
  Receipt Date: 20071026
  Transmission Date: 20080405
  Serious: Yes (Hospitalization)
  Sender: FDA-Public Use
  Company Number: US-BAYER-200711384BWH

PATIENT
  Age: 32 Year
  Sex: Female
  Weight: 57 kg

DRUGS (13)
  1. AVELOX [Suspect]
     Indication: SINUSITIS
     Dosage: TOTAL DAILY DOSE: 400 MG  UNIT DOSE: 400 MG
     Route: 048
     Dates: start: 20070423, end: 20070425
  2. PREDNISONE [Suspect]
     Indication: SINUSITIS
     Route: 048
     Dates: end: 20070425
  3. AUGMENTIN [Suspect]
     Indication: SINUSITIS
  4. KLONOPIN [Concomitant]
     Indication: OBSESSIVE-COMPULSIVE DISORDER
  5. MULTI-VITAMIN [Concomitant]
  6. OMEGA 3-6-9 [Concomitant]
  7. CALCIUM MAGNESIUM [Concomitant]
  8. VITAMIN D [Concomitant]
  9. PERCOCET [Concomitant]
     Route: 048
  10. ATIVAN [Concomitant]
     Route: 048
  11. ZOFRAN [Concomitant]
     Route: 048
  12. OMNICEF [Concomitant]
     Indication: SINUSITIS
  13. GREEN TEA [Concomitant]

REACTIONS (20)
  - ACTIVITIES OF DAILY LIVING IMPAIRED [None]
  - ANXIETY [None]
  - ARTHRALGIA [None]
  - ASTHENIA [None]
  - DIARRHOEA [None]
  - DISORIENTATION [None]
  - DIZZINESS [None]
  - FATIGUE [None]
  - GAIT DISTURBANCE [None]
  - LIMB DISCOMFORT [None]
  - MUSCLE SPASMS [None]
  - MUSCULOSKELETAL STIFFNESS [None]
  - NAUSEA [None]
  - NEUROPATHY [None]
  - PAIN [None]
  - PALPITATIONS [None]
  - PARAESTHESIA [None]
  - PHARYNGEAL OEDEMA [None]
  - TENDON PAIN [None]
  - TENDONITIS [None]
